FAERS Safety Report 25997853 (Version 1)
Quarter: 2025Q4

REPORT INFORMATION
  Report Type: Report from Study
  Country: US (occurrence: US)
  Receive Date: 20251105
  Receipt Date: 20251105
  Transmission Date: 20260118
  Serious: Yes (Hospitalization, Other)
  Sender: ABBVIE
  Company Number: US-ABBVIE-6526306

PATIENT
  Age: 53 Year
  Sex: Female

DRUGS (1)
  1. CREON [Suspect]
     Active Substance: PANCRELIPASE AMYLASE\PANCRELIPASE LIPASE\PANCRELIPASE PROTEASE
     Indication: Pancreatic failure
     Route: 048
     Dates: start: 20251004

REACTIONS (4)
  - Dehydration [Recovering/Resolving]
  - Dyspepsia [Not Recovered/Not Resolved]
  - Diarrhoea [Recovering/Resolving]
  - Subclavian vein thrombosis [Unknown]

NARRATIVE: CASE EVENT DATE: 20251001
